FAERS Safety Report 5204357-3 (Version None)
Quarter: 2007Q1

REPORT INFORMATION
  Report Type: 
  Country: None (occurrence: None)
  Receive Date: 20070110
  Receipt Date: 20060412
  Transmission Date: 20070707
  Serious: Yes (Other)
  Sender: FDA-Public Use
  Company Number: US-BRISTOL-MYERS SQUIBB COMPANY-13298070

PATIENT
  Age: 60 Year
  Sex: Female
  Weight: 61 kg

DRUGS (7)
  1. ABILIFY [Suspect]
     Indication: BIPOLAR DISORDER
     Route: 048
     Dates: start: 20060217, end: 20060221
  2. PREMARIN [Concomitant]
     Dates: start: 19900101
  3. SYNTHROID [Concomitant]
     Dates: start: 19850101
  4. LITHIUM CARBONATE [Concomitant]
     Indication: ANXIETY
     Dates: start: 19810101
  5. LITHIUM CARBONATE [Concomitant]
     Indication: MOOD SWINGS
     Dates: start: 19810101
  6. GABAPENTIN [Concomitant]
     Indication: ANXIETY
     Dates: start: 20051001
  7. GABAPENTIN [Concomitant]
     Indication: MOOD SWINGS
     Dates: start: 20051001

REACTIONS (10)
  - BONE PAIN [None]
  - EUPHORIC MOOD [None]
  - FEAR [None]
  - LOGORRHOEA [None]
  - MANIA [None]
  - MOOD SWINGS [None]
  - MUSCLE SPASMS [None]
  - SOMNOLENCE [None]
  - SUICIDAL IDEATION [None]
  - VISION BLURRED [None]
